FAERS Safety Report 9738455 (Version 2)
Quarter: 2013Q4

REPORT INFORMATION
  Report Type: Spontaneous
  Country: GB (occurrence: GB)
  Receive Date: 20131208
  Receipt Date: 20131208
  Transmission Date: 20140711
  Serious: Yes (Disabling)
  Sender: FDA-Public Use
  Company Number: GB-US-EMD SERONO, INC.-7141652

PATIENT
  Age: 37 Year
  Sex: Female

DRUGS (1)
  1. REBIF [Suspect]
     Indication: PRODUCT USED FOR UNKNOWN INDICATION
     Route: 058
     Dates: start: 20120123, end: 201311

REACTIONS (7)
  - Influenza like illness [Not Recovered/Not Resolved]
  - Injection site infection [Recovered/Resolved]
  - Depressed mood [Not Recovered/Not Resolved]
  - Sciatica [Unknown]
  - Nasopharyngitis [Unknown]
  - Sleep disorder [Unknown]
  - Headache [Unknown]
